FAERS Safety Report 7688195-8 (Version None)
Quarter: 2011Q3

REPORT INFORMATION
  Report Type: 
  Country: None (occurrence: None)
  Receive Date: 20110817
  Receipt Date: 20110513
  Transmission Date: 20111222
  Serious: No
  Sender: FDA-Public Use
  Company Number: US-GLAXOSMITHKLINE-A0927324A

PATIENT
  Age: 58 Year
  Sex: Male

DRUGS (3)
  1. VICODIN [Concomitant]
  2. LAXATIVE [Concomitant]
  3. VOTRIENT [Suspect]
     Indication: RENAL CELL CARCINOMA
     Dosage: 800MG PER DAY
     Route: 048
     Dates: start: 20110410

REACTIONS (3)
  - NAUSEA [None]
  - FATIGUE [None]
  - HAIR COLOUR CHANGES [None]
